FAERS Safety Report 10167666 (Version 1)
Quarter: 2014Q2

REPORT INFORMATION
  Report Type: Spontaneous
  Country: US (occurrence: US)
  Receive Date: 20140512
  Receipt Date: 20140512
  Transmission Date: 20141212
  Serious: No
  Sender: FDA-Public Use
  Company Number: US-MYLANLABS-2014S1009082

PATIENT
  Sex: Female
  Weight: 90.72 kg

DRUGS (2)
  1. MORPHINE SULFATE EXTENDED-RELEASE TABLETS [Suspect]
     Indication: NEURALGIA
     Route: 048
  2. FENTANYL TRANSDERMAL SYSTEM [Concomitant]
     Indication: NEURALGIA
     Route: 062
     Dates: start: 201004

REACTIONS (2)
  - Drug ineffective [Not Recovered/Not Resolved]
  - Pain [Not Recovered/Not Resolved]
